FAERS Safety Report 8732424 (Version 3)
Quarter: 2012Q4

REPORT INFORMATION
  Report Type: 
  Country: US (occurrence: US)
  Receive Date: 20120820
  Receipt Date: 20121018
  Transmission Date: 20130627
  Serious: Yes (Other)
  Sender: FDA-Public Use
  Company Number: US-PFIZER INC-2012202178

PATIENT
  Age: 47 Year
  Sex: Female
  Weight: 48.98 kg

DRUGS (11)
  1. CHANTIX [Suspect]
     Indication: SMOKING CESSATION THERAPY
     Dosage: UNK
     Route: 048
  2. CHANTIX [Suspect]
     Dosage: UNK
     Route: 048
  3. CHANTIX [Suspect]
     Dosage: UNK
     Route: 048
  4. NEURONTIN [Suspect]
     Indication: MULTIPLE SCLEROSIS
     Dosage: 600 mg, daily
     Route: 048
     Dates: start: 2004
  5. NEURONTIN [Suspect]
     Indication: TRIGEMINAL NEURALGIA
  6. REBIF [Suspect]
     Indication: MULTIPLE SCLEROSIS
     Dosage: 44 ug, 3x/week
     Dates: start: 2004
  7. REBIF [Suspect]
     Indication: TRIGEMINAL NEURALGIA
  8. BETASERON [Suspect]
     Indication: MULTIPLE SCLEROSIS
     Dosage: UNK
     Dates: start: 2004
  9. BETASERON [Suspect]
     Indication: TRIGEMINAL NEURALGIA
  10. HYDROCODONE [Concomitant]
     Indication: PAIN
     Dosage: 10 mg, as needed
  11. ESTRADIOL [Concomitant]
     Indication: MENOPAUSE
     Dosage: UNK

REACTIONS (9)
  - Multiple sclerosis [Unknown]
  - Trigeminal neuralgia [Unknown]
  - Thinking abnormal [Unknown]
  - Nausea [Unknown]
  - Crying [Unknown]
  - Emotional disorder [Unknown]
  - Abnormal dreams [Unknown]
  - Insomnia [Unknown]
  - Burning sensation [Unknown]
